FAERS Safety Report 19126184 (Version 1)
Quarter: 2021Q2

REPORT INFORMATION
  Report Type: Spontaneous
  Country: US (occurrence: US)
  Receive Date: 20210412
  Receipt Date: 20210412
  Transmission Date: 20210717
  Serious: Yes (Disabling, Other)
  Sender: FDA-Public Use
  Company Number: None

PATIENT
  Age: 53 Year
  Sex: Female
  Weight: 74.25 kg

DRUGS (8)
  1. NIVOLUMAB [Suspect]
     Active Substance: NIVOLUMAB
     Indication: MALIGNANT MELANOMA
     Dates: start: 20190610, end: 20190622
  2. ZIOPTAN [Concomitant]
     Active Substance: TAFLUPROST
  3. XILDRA [Concomitant]
  4. B6 [Concomitant]
     Active Substance: PYRIDOXINE HYDROCHLORIDE
  5. MULTI VITAMIN [Concomitant]
     Active Substance: VITAMINS
  6. FISH OIL [Concomitant]
     Active Substance: FISH OIL
  7. PRISTINE [Concomitant]
     Active Substance: KETOCONAZOLE
  8. BIOTIN [Concomitant]
     Active Substance: BIOTIN

REACTIONS (5)
  - Cataract [None]
  - Dry eye [None]
  - Eye irritation [None]
  - Visual impairment [None]
  - Retinal detachment [None]

NARRATIVE: CASE EVENT DATE: 20191219
